FAERS Safety Report 12921846 (Version 3)
Quarter: 2017Q1

REPORT INFORMATION
  Report Type: Spontaneous
  Country: US (occurrence: US)
  Receive Date: 20161108
  Receipt Date: 20170223
  Transmission Date: 20170428
  Serious: No
  Sender: FDA-Public Use
  Company Number: US-009507513-1611USA003519

PATIENT
  Sex: Female

DRUGS (1)
  1. NUVARING [Suspect]
     Active Substance: ETHINYL ESTRADIOL\ETONOGESTREL
     Dosage: 1 RING, UNK
     Route: 067
     Dates: start: 20161101

REACTIONS (3)
  - Product quality issue [Unknown]
  - No adverse event [Unknown]
  - Device expulsion [Unknown]

NARRATIVE: CASE EVENT DATE: 20161101
